FAERS Safety Report 21034754 (Version 1)
Quarter: 2022Q3

REPORT INFORMATION
  Report Type: Spontaneous
  Country: US (occurrence: US)
  Receive Date: 20220701
  Receipt Date: 20220701
  Transmission Date: 20221027
  Serious: Yes (Other)
  Sender: FDA-Public Use
  Company Number: US-GUERBET-US-20220056

PATIENT
  Sex: Female

DRUGS (1)
  1. OPTIMARK [Suspect]
     Active Substance: GADOVERSETAMIDE
     Indication: Product used for unknown indication
     Route: 065

REACTIONS (2)
  - Contrast media toxicity [Unknown]
  - Product residue present [Unknown]
